FAERS Safety Report 10449543 (Version 1)
Quarter: 2014Q3

REPORT INFORMATION
  Report Type: Spontaneous
  Country: US (occurrence: None)
  Receive Date: 20140911
  Receipt Date: 20140911
  Transmission Date: 20150326
  Serious: Yes (Life-Threatening)
  Sender: FDA-Public Use
  Company Number: None

PATIENT
  Age: 56 Year
  Sex: Female
  Weight: 73.94 kg

DRUGS (1)
  1. MELOXICAM 15 MG CVS [Suspect]
     Active Substance: MELOXICAM
     Indication: BURSITIS
     Dosage: 1 PILL ONCE DAILY TAKEN BY MOUTH
     Route: 048
     Dates: start: 20140821, end: 20140828

REACTIONS (4)
  - Food interaction [None]
  - Urticaria [None]
  - Hypersensitivity [None]
  - Throat tightness [None]

NARRATIVE: CASE EVENT DATE: 20140828
